FAERS Safety Report 24206691 (Version 1)
Quarter: 2024Q3

REPORT INFORMATION
  Report Type: Spontaneous
  Country: PL (occurrence: PL)
  Receive Date: 20240813
  Receipt Date: 20240813
  Transmission Date: 20241016
  Serious: Yes (Hospitalization, Other)
  Sender: JAZZ
  Company Number: PL-JAZZ PHARMACEUTICALS-2024-PL-001772

PATIENT
  Sex: Female

DRUGS (3)
  1. VYXEOS [Suspect]
     Active Substance: CYTARABINE\DAUNORUBICIN
     Indication: Acute myeloid leukaemia
     Dosage: 44/100 MG/M2
     Route: 042
     Dates: start: 20231206
  2. VYXEOS [Suspect]
     Active Substance: CYTARABINE\DAUNORUBICIN
     Dosage: 44/100 MG/M2
     Route: 042
     Dates: start: 20231208
  3. VYXEOS [Suspect]
     Active Substance: CYTARABINE\DAUNORUBICIN
     Dosage: 44/100 MG/M2
     Route: 042
     Dates: start: 20231210

REACTIONS (2)
  - Febrile neutropenia [Unknown]
  - Staphylococcal infection [Unknown]
